FAERS Safety Report 24372764 (Version 1)
Quarter: 2024Q3

REPORT INFORMATION
  Report Type: Spontaneous
  Country: US (occurrence: US)
  Receive Date: 20240927
  Receipt Date: 20240927
  Transmission Date: 20241017
  Serious: No
  Sender: Thea Pharma
  Company Number: US-THEA-2024001838

PATIENT
  Sex: Female

DRUGS (3)
  1. IYUZEH [Suspect]
     Active Substance: LATANOPROST
     Indication: Glaucoma
     Dosage: 1 DROP RIGHT EYE DAILY
     Route: 047
     Dates: start: 2024
  2. VITAMINS [Concomitant]
     Active Substance: VITAMINS
     Indication: Product used for unknown indication
     Route: 065
  3. VITAMIN D [Concomitant]
     Active Substance: VITAMIN D NOS
     Indication: Product used for unknown indication
     Route: 065

REACTIONS (3)
  - Lid sulcus deepened [Not Recovered/Not Resolved]
  - Multiple use of single-use product [Not Recovered/Not Resolved]
  - Product storage error [Not Recovered/Not Resolved]

NARRATIVE: CASE EVENT DATE: 20240101
